FAERS Safety Report 9637188 (Version 1)
Quarter: 2013Q4

REPORT INFORMATION
  Report Type: Spontaneous
  Country: US (occurrence: US)
  Receive Date: 20131022
  Receipt Date: 20131022
  Transmission Date: 20140711
  Serious: No
  Sender: FDA-Public Use
  Company Number: US-BAYER-2013-128018

PATIENT
  Age: 69 Year
  Sex: Female
  Weight: 54.42 kg

DRUGS (1)
  1. ALEVE CAPLET [Suspect]
     Dosage: 1 DF, PRN
     Route: 048
     Dates: start: 20131017

REACTIONS (1)
  - Extra dose administered [None]
